FAERS Safety Report 6695938-9 (Version None)
Quarter: 2010Q2

REPORT INFORMATION
  Report Type: 
  Country: None (occurrence: None)
  Receive Date: 20100422
  Receipt Date: 20100422
  Transmission Date: 20101027
  Serious: Yes (Other)
  Sender: FDA-Public Use
  Company Number: None

PATIENT
  Sex: Male
  Weight: 97.5 kg

DRUGS (4)
  1. WELLBUTRIN XL [Suspect]
     Indication: DEPRESSION
     Dosage: 150MG PER MORNING 300 MG MAX DAILY ORAL
     Route: 048
     Dates: start: 20100101
  2. WELLBUTRIN XL [Suspect]
     Indication: DEPRESSION
     Dosage: 150MG PER MORNING 300 MG MAX DAILY ORAL
     Route: 048
     Dates: start: 20100420
  3. NORTRIPTYLINE HYDROCHLORIDE [Concomitant]
  4. AMBIEN [Concomitant]

REACTIONS (5)
  - ANXIETY [None]
  - ASTHMA [None]
  - DRUG HYPERSENSITIVITY [None]
  - HERPES ZOSTER [None]
  - PARAESTHESIA [None]
